FAERS Safety Report 14557016 (Version 2)
Quarter: 2018Q1

REPORT INFORMATION
  Report Type: Spontaneous
  Country: JP (occurrence: JP)
  Receive Date: 20180221
  Receipt Date: 20180301
  Transmission Date: 20180509
  Serious: No
  Sender: FDA-Public Use
  Company Number: JP-GLAXOSMITHKLINE-JP2018JPN027035

PATIENT
  Age: 57 Year
  Sex: Female

DRUGS (4)
  1. VALACICLOVIR HYDROCHLORIDE [Suspect]
     Active Substance: VALACYCLOVIR HYDROCHLORIDE
     Indication: ANTIVIRAL PROPHYLAXIS
     Dosage: 500 MG, 1D
     Route: 048
     Dates: start: 20180202, end: 20180202
  2. UNISIA [Concomitant]
     Active Substance: AMLODIPINE BESYLATE\CANDESARTAN CILEXETIL
     Indication: HYPERTENSION
     Dosage: UNK
     Dates: start: 201304
  3. LIVALO TABLETS [Concomitant]
     Indication: DYSLIPIDAEMIA
     Dosage: 1 MG, 1D
     Dates: start: 201608
  4. ZOVIRAX [Suspect]
     Active Substance: ACYCLOVIR
     Dosage: 2000 MG, 1D
     Route: 048
     Dates: start: 20180128, end: 201802

REACTIONS (1)
  - Dysuria [Recovered/Resolved]

NARRATIVE: CASE EVENT DATE: 20180202
